FAERS Safety Report 4558036-6 (Version None)
Quarter: 2005Q1

REPORT INFORMATION
  Report Type: 
  Country: None (occurrence: None)
  Receive Date: 20050121
  Receipt Date: 20040622
  Transmission Date: 20050727
  Serious: Yes (Hospitalization)
  Sender: FDA-Public Use
  Company Number: US-BRISTOL-MYERS SQUIBB COMPANY-12622122

PATIENT
  Age: 23 Year
  Sex: Male
  Weight: 63 kg

DRUGS (7)
  1. SERZONE [Suspect]
     Indication: DEPRESSION
     Route: 048
     Dates: start: 20030204, end: 20040217
  2. EFFEXOR XR [Concomitant]
     Indication: DEPRESSION
     Route: 048
     Dates: start: 20020401, end: 20040201
  3. PROVIGIL [Concomitant]
  4. AMBIEN [Concomitant]
     Indication: SLEEP DISORDER
     Dosage: ^OCC^
     Route: 048
     Dates: start: 20030201, end: 20040201
  5. MULTI-VITAMINS [Concomitant]
  6. OMEGA 3 FATTY ACID [Concomitant]
  7. XANAX [Concomitant]
     Dosage: ^OCC^

REACTIONS (1)
  - HEPATOCELLULAR DAMAGE [None]
